FAERS Safety Report 15646957 (Version 1)
Quarter: 2018Q4

REPORT INFORMATION
  Report Type: Spontaneous
  Country: US (occurrence: US)
  Receive Date: 20181122
  Receipt Date: 20181122
  Transmission Date: 20190205
  Serious: Yes (Other)
  Sender: FDA-Public Use
  Company Number: US-BEH-2018096945

PATIENT
  Age: 71 Year
  Sex: Male

DRUGS (15)
  1. ROSUVASTATIN CALCIUM. [Concomitant]
     Active Substance: ROSUVASTATIN CALCIUM
  2. AMOXICILLIN. [Concomitant]
     Active Substance: AMOXICILLIN
  3. SUPER B COMPLEX WITH VITAMIN C [Concomitant]
  4. ALLERGY RELIEF                     /00072502/ [Concomitant]
  5. LISINOPRIL. [Concomitant]
     Active Substance: LISINOPRIL
  6. HYDRALAZINE HCL [Concomitant]
     Active Substance: HYDRALAZINE HYDROCHLORIDE
  7. LEVETIRACETAM. [Concomitant]
     Active Substance: LEVETIRACETAM
  8. SIMVASTATIN. [Concomitant]
     Active Substance: SIMVASTATIN
  9. HIZENTRA [Suspect]
     Active Substance: HUMAN IMMUNOGLOBULIN G
     Indication: ASTHMA
     Dosage: 6 G, QW
     Route: 058
  10. HIZENTRA [Suspect]
     Active Substance: HUMAN IMMUNOGLOBULIN G
     Dosage: UNK
     Route: 058
  11. BABY ASPIRIN [Concomitant]
     Active Substance: ASPIRIN
  12. CARVEDILOL. [Concomitant]
     Active Substance: CARVEDILOL
  13. VITAMIN C [Concomitant]
     Active Substance: ASCORBIC ACID
  14. COLCHICINE. [Concomitant]
     Active Substance: COLCHICINE
  15. ELIQUIS [Concomitant]
     Active Substance: APIXABAN

REACTIONS (1)
  - Vascular graft [Unknown]

NARRATIVE: CASE EVENT DATE: 2018
